FAERS Safety Report 17414016 (Version 1)
Quarter: 2020Q1

REPORT INFORMATION
  Report Type: Report from Study
  Country: US (occurrence: US)
  Receive Date: 20200213
  Receipt Date: 20200213
  Transmission Date: 20200409
  Serious: Yes (Death)
  Sender: FDA-Public Use
  Company Number: US-MYLANLABS-2020M1016614

PATIENT

DRUGS (4)
  1. CETUXIMAB. [Suspect]
     Active Substance: CETUXIMAB
     Dosage: 250 MG/M2 OVER 60 MINUTES ON DAYS 8, 15, 22 AND 29
     Route: 042
  2. CETUXIMAB. [Suspect]
     Active Substance: CETUXIMAB
     Indication: OESOPHAGEAL ADENOCARCINOMA
     Dosage: 400 MG/M2 OVER 120 MINUTES ON DAY 1
     Route: 042
  3. FLUOROURACIL. [Suspect]
     Active Substance: FLUOROURACIL
     Indication: OESOPHAGEAL ADENOCARCINOMA
     Dosage: CONTINUOUS IV INFUSION OF FLUOROURACIL 180 MG/M2 OVER 24 HOURS FROM DAYS 1-35
     Route: 042
  4. OXALIPLATIN. [Suspect]
     Active Substance: OXALIPLATIN
     Indication: OESOPHAGEAL ADENOCARCINOMA
     Dosage: 85 MG/M2 OVER 120 MINUTES ON DAYS 1,15 AND 29.
     Route: 042

REACTIONS (2)
  - Acute respiratory distress syndrome [Fatal]
  - Cardiac arrest [Fatal]
